APPROVED DRUG PRODUCT: NITROGLYCERIN
Active Ingredient: NITROGLYCERIN
Strength: 5MG/ML
Dosage Form/Route: INJECTABLE;INJECTION
Application: A070634 | Product #001
Applicant: SMITH AND NEPHEW SOLOPAK DIV SMITH AND NEPHEW
Approved: Jun 19, 1986 | RLD: No | RS: No | Type: DISCN